FAERS Safety Report 16986547 (Version 9)
Quarter: 2021Q2

REPORT INFORMATION
  Report Type: Report from Study
  Country: US (occurrence: US)
  Receive Date: 20191103
  Receipt Date: 20210521
  Transmission Date: 20210716
  Serious: Yes (Hospitalization, Other)
  Sender: FDA-Public Use
  Company Number: US-SHIRE-US201922441

PATIENT
  Age: 81 Year
  Sex: Female

DRUGS (28)
  1. TEDUGLUTIDE [Suspect]
     Active Substance: TEDUGLUTIDE
     Dosage: 0.2350 UNK, 1X/DAY:QD
     Route: 058
     Dates: start: 20190701
  2. TEDUGLUTIDE [Suspect]
     Active Substance: TEDUGLUTIDE
     Dosage: 0.2350 UNK, 1X/DAY:QD
     Route: 058
     Dates: start: 20190701
  3. TEDUGLUTIDE [Suspect]
     Active Substance: TEDUGLUTIDE
     Dosage: 2.35 MILLIGRAM, 1X/DAY:QD
     Route: 058
     Dates: start: 20190704
  4. TEDUGLUTIDE [Suspect]
     Active Substance: TEDUGLUTIDE
     Indication: SHORT-BOWEL SYNDROME
     Dosage: 2.35 MILLIGRAM, 1X/DAY:QD
     Route: 058
     Dates: start: 20190613
  5. TEDUGLUTIDE [Suspect]
     Active Substance: TEDUGLUTIDE
     Dosage: 0.2350 UNK, 1X/DAY:QD
     Route: 058
     Dates: start: 20190704
  6. TEDUGLUTIDE [Suspect]
     Active Substance: TEDUGLUTIDE
     Dosage: 2.35 MILLIGRAM, 1X/DAY:QD
     Route: 058
     Dates: start: 20200608
  7. TEDUGLUTIDE [Suspect]
     Active Substance: TEDUGLUTIDE
     Dosage: 0.25 MILLILITER, 1X/DAY:QD
     Route: 065
  8. TEDUGLUTIDE [Suspect]
     Active Substance: TEDUGLUTIDE
     Indication: SHORT-BOWEL SYNDROME
     Dosage: 2.35 MILLIGRAM, 1X/DAY:QD
     Route: 058
     Dates: start: 20190613
  9. TEDUGLUTIDE [Suspect]
     Active Substance: TEDUGLUTIDE
     Dosage: 2.35 MILLIGRAM, 1X/DAY:QD
     Route: 058
     Dates: start: 20190704
  10. TEDUGLUTIDE [Suspect]
     Active Substance: TEDUGLUTIDE
     Dosage: 0.2350 UNK, 1X/DAY:QD
     Route: 058
     Dates: start: 20190704
  11. TEDUGLUTIDE [Suspect]
     Active Substance: TEDUGLUTIDE
     Dosage: 2.35 MILLIGRAM, 1X/DAY:QD
     Route: 058
     Dates: start: 20200608
  12. TEDUGLUTIDE [Suspect]
     Active Substance: TEDUGLUTIDE
     Dosage: 2.35 MILLIGRAM, 1X/DAY:QD
     Route: 058
     Dates: start: 20200608
  13. TEDUGLUTIDE [Suspect]
     Active Substance: TEDUGLUTIDE
     Dosage: 2.35 MILLIGRAM, 1X/DAY:QD
     Route: 058
     Dates: start: 20200608
  14. TEDUGLUTIDE [Suspect]
     Active Substance: TEDUGLUTIDE
     Dosage: 0.2350 UNK, 1X/DAY:QD
     Route: 050
     Dates: start: 20190704
  15. TEDUGLUTIDE [Suspect]
     Active Substance: TEDUGLUTIDE
     Indication: SHORT-BOWEL SYNDROME
     Dosage: 2.35 MILLIGRAM, 1X/DAY:QD
     Route: 058
     Dates: start: 20190613
  16. TEDUGLUTIDE [Suspect]
     Active Substance: TEDUGLUTIDE
     Dosage: 2.35 MILLIGRAM, 1X/DAY:QD
     Route: 058
     Dates: start: 20190704
  17. TEDUGLUTIDE [Suspect]
     Active Substance: TEDUGLUTIDE
     Dosage: 0.2350 UNK, 1X/DAY:QD
     Route: 058
     Dates: start: 20190704
  18. TEDUGLUTIDE [Suspect]
     Active Substance: TEDUGLUTIDE
     Dosage: 2.35 MILLIGRAM, 1X/DAY:QD
     Route: 058
     Dates: start: 20190704
  19. TEDUGLUTIDE [Suspect]
     Active Substance: TEDUGLUTIDE
     Dosage: 0.2350 UNK, 1X/DAY:QD
     Route: 058
     Dates: start: 20190704
  20. TEDUGLUTIDE [Suspect]
     Active Substance: TEDUGLUTIDE
     Dosage: 0.25 MILLILITER, 1X/DAY:QD
     Route: 065
  21. TEDUGLUTIDE [Suspect]
     Active Substance: TEDUGLUTIDE
     Dosage: 0.25 MILLILITER, 1X/DAY:QD
     Route: 065
  22. TEDUGLUTIDE [Suspect]
     Active Substance: TEDUGLUTIDE
     Dosage: 0.25 MILLILITER, 1X/DAY:QD
     Route: 065
  23. TEDUGLUTIDE [Suspect]
     Active Substance: TEDUGLUTIDE
     Dosage: 0.2350 UNK, 1X/DAY:QD
     Route: 050
     Dates: start: 20190704
  24. TEDUGLUTIDE [Suspect]
     Active Substance: TEDUGLUTIDE
     Dosage: 0.2350 UNK, 1X/DAY:QD
     Route: 050
     Dates: start: 20190704
  25. TEDUGLUTIDE [Suspect]
     Active Substance: TEDUGLUTIDE
     Indication: SHORT-BOWEL SYNDROME
     Dosage: 2.35 MILLIGRAM, 1X/DAY:QD
     Route: 058
     Dates: start: 20190613
  26. TEDUGLUTIDE [Suspect]
     Active Substance: TEDUGLUTIDE
     Dosage: 0.2350 UNK, 1X/DAY:QD
     Route: 058
     Dates: start: 20190701
  27. TEDUGLUTIDE [Suspect]
     Active Substance: TEDUGLUTIDE
     Dosage: 0.2350 UNK, 1X/DAY:QD
     Route: 058
     Dates: start: 20190701
  28. TEDUGLUTIDE [Suspect]
     Active Substance: TEDUGLUTIDE
     Dosage: 0.2350 UNK, 1X/DAY:QD
     Route: 050
     Dates: start: 20190704

REACTIONS (17)
  - Hypophagia [Unknown]
  - Essential tremor [Unknown]
  - Product use complaint [Unknown]
  - Abdominal pain upper [Recovered/Resolved]
  - Intervertebral disc protrusion [Not Recovered/Not Resolved]
  - Tremor [Unknown]
  - Product dose omission issue [Recovered/Resolved]
  - Incorrect dose administered [Unknown]
  - Diarrhoea [Unknown]
  - Contusion [Recovering/Resolving]
  - Nausea [Unknown]
  - Hospitalisation [Recovering/Resolving]
  - Hypersensitivity [Not Recovered/Not Resolved]
  - Rheumatoid arthritis [Not Recovered/Not Resolved]
  - Food intolerance [Unknown]
  - Back pain [Unknown]
  - Parkinsonism [Not Recovered/Not Resolved]

NARRATIVE: CASE EVENT DATE: 20190706
